FAERS Safety Report 4336615-9 (Version None)
Quarter: 2004Q2

REPORT INFORMATION
  Report Type: 
  Country: None (occurrence: None)
  Receive Date: 20040408
  Receipt Date: 20040329
  Transmission Date: 20050107
  Serious: Yes (Hospitalization, Other)
  Sender: FDA-Public Use
  Company Number: 2003192028US

PATIENT
  Age: 36 Year
  Sex: Female
  Weight: 81.6 kg

DRUGS (2)
  1. DEPO-PROVERA [Suspect]
     Indication: CONTRACEPTION
     Dosage: EVERY 3 MONTHS, LAST INJECTION,
     Dates: start: 20030301, end: 20030301
  2. DEPO-PROVERA [Suspect]
     Indication: CONTRACEPTION
     Dosage: EVERY 3 MONTHS, LAST INJECTION,
     Dates: start: 20030630, end: 20030630

REACTIONS (13)
  - ABORTION SPONTANEOUS [None]
  - AMENORRHOEA [None]
  - BREAST TENDERNESS [None]
  - COMPLICATIONS OF MATERNAL EXPOSURE TO THERAPEUTIC DRUGS [None]
  - FATIGUE [None]
  - GASTROINTESTINAL DISORDER [None]
  - LOSS OF LIBIDO [None]
  - MAJOR DEPRESSION [None]
  - MATERNAL DRUGS AFFECTING FOETUS [None]
  - MENORRHAGIA [None]
  - RENAL DISORDER [None]
  - UTERINE LEIOMYOMA [None]
  - VITAMIN B12 DEFICIENCY [None]
